FAERS Safety Report 9168405 (Version 3)
Quarter: 2013Q2

REPORT INFORMATION
  Report Type: Spontaneous
  Country: US (occurrence: US)
  Receive Date: 20130318
  Receipt Date: 20130523
  Transmission Date: 20140414
  Serious: No
  Sender: FDA-Public Use
  Company Number: US-009507513-1303USA008121

PATIENT
  Sex: Female

DRUGS (4)
  1. CLARITIN-D 12 HOUR [Suspect]
     Indication: HYPERSENSITIVITY
     Dosage: 5 MG, BID
     Route: 048
     Dates: start: 2012
  2. CLARITIN-D 12 HOUR [Suspect]
     Indication: LACRIMATION INCREASED
     Dosage: 5 MG, BID
     Route: 048
  3. CLARITIN-D 12 HOUR [Suspect]
     Indication: RHINORRHOEA
  4. CLARITIN-D 12 HOUR [Suspect]
     Indication: MEDICAL OBSERVATION

REACTIONS (2)
  - Expired drug administered [Unknown]
  - No adverse event [Unknown]
